FAERS Safety Report 4846850-9 (Version None)
Quarter: 2005Q4

REPORT INFORMATION
  Report Type: 
  Country: None (occurrence: None)
  Receive Date: 20051207
  Receipt Date: 20050422
  Transmission Date: 20060501
  Serious: No
  Sender: FDA-Public Use
  Company Number: US-BRISTOL-MYERS SQUIBB COMPANY-12944989

PATIENT
  Sex: Male

DRUGS (2)
  1. VIDEX [Suspect]
  2. VIREAD [Suspect]
     Dosage: DURATION APPROXIMATELY 9 TO 12 MONTHS

REACTIONS (1)
  - SLEEP DISORDER [None]
